FAERS Safety Report 4396074-7 (Version None)
Quarter: 2004Q2

REPORT INFORMATION
  Report Type: 
  Country: None (occurrence: None)
  Receive Date: 20040621
  Receipt Date: 20031125
  Transmission Date: 20050107
  Serious: Yes (Death)
  Sender: FDA-Public Use
  Company Number: USA-2003-0011076

PATIENT
  Age: 38 Year
  Sex: Male
  Weight: 71.7 kg

DRUGS (12)
  1. OXYCODONE HCL [Suspect]
  2. DIHYDROCODEINE/CAFFEINE/ACETAMINOPHEN (SIMILAR TO ANDA 88-584) (DOHYDR [Suspect]
  3. DIPHENHYDRAMINE HCL [Suspect]
  4. METHADONE HCL [Suspect]
  5. PHENTERMINE [Suspect]
  6. MEPROBAMATE [Suspect]
  7. CARISOPRODOL [Suspect]
  8. DIMENHYDRINATE (DIMENHYDRINATE) [Suspect]
  9. DIAZEPAM [Suspect]
  10. CANNABIS (CANNABIS) [Suspect]
  11. IBUPROFEN [Suspect]
  12. CAFFEINE (CAFFEINE) [Suspect]

REACTIONS (2)
  - ACCIDENTAL OVERDOSE [None]
  - MULTIPLE DRUG OVERDOSE [None]
